FAERS Safety Report 10209966 (Version 1)
Quarter: 2014Q2

REPORT INFORMATION
  Report Type: Spontaneous
  Country: US (occurrence: US)
  Receive Date: 20140602
  Receipt Date: 20140602
  Transmission Date: 20141212
  Serious: Yes (Hospitalization)
  Sender: FDA-Public Use
  Company Number: US-SA-2014SA070860

PATIENT
  Age: 68 Year
  Sex: Male
  Weight: 68.03 kg

DRUGS (3)
  1. FABRAZYME [Suspect]
     Indication: ANAEMIA
     Route: 042
  2. FABRAZYME [Suspect]
     Indication: RENAL FAILURE CHRONIC
     Route: 042
  3. FABRAZYME [Suspect]
     Indication: FABRY^S DISEASE
     Route: 042

REACTIONS (2)
  - Hospitalisation [Unknown]
  - Off label use [Unknown]
